FAERS Safety Report 21641591 (Version 1)
Quarter: 2022Q4

REPORT INFORMATION
  Report Type: Spontaneous
  Country: US (occurrence: US)
  Receive Date: 20221125
  Receipt Date: 20221125
  Transmission Date: 20230112
  Serious: No
  Sender: FDA-Public Use
  Company Number: US-APOTEX-2022AP007280

PATIENT
  Age: 64 Year
  Sex: Female

DRUGS (1)
  1. RUGBY NICOTINE [Suspect]
     Active Substance: NICOTINE
     Indication: Smoking cessation therapy
     Dosage: 1 DOSAGE FORM, 24 HOURS
     Route: 062
     Dates: start: 20220426

REACTIONS (4)
  - Application site pain [Recovered/Resolved]
  - Rash macular [Recovered/Resolved]
  - Application site swelling [Recovered/Resolved]
  - Product quality issue [Unknown]

NARRATIVE: CASE EVENT DATE: 20220426
